FAERS Safety Report 10495248 (Version 5)
Quarter: 2014Q4

REPORT INFORMATION
  Report Type: Report from Study
  Country: CA (occurrence: CA)
  Receive Date: 20141003
  Receipt Date: 20141211
  Transmission Date: 20150528
  Serious: Yes (Death, Hospitalization)
  Sender: FDA-Public Use
  Company Number: PHHY2011CA09476

PATIENT
  Age: 58 Year
  Sex: Male

DRUGS (2)
  1. SANDOSTATIN LAR DEPOT [Suspect]
     Active Substance: OCTREOTIDE ACETATE
     Dosage: 30 MG, EVERY 4 WEEKS
     Route: 030
  2. SANDOSTATIN LAR DEPOT [Suspect]
     Active Substance: OCTREOTIDE ACETATE
     Indication: NEUROENDOCRINE CARCINOMA METASTATIC
     Dosage: 20 MG, MONTHLY
     Route: 030
     Dates: start: 20110131

REACTIONS (9)
  - Dehydration [Unknown]
  - Injection site mass [Recovering/Resolving]
  - Injection site bruising [Unknown]
  - Malaise [Unknown]
  - White blood cell count decreased [Unknown]
  - Blood pressure systolic increased [Unknown]
  - Death [Fatal]
  - Liver disorder [Unknown]
  - Fatigue [Unknown]

NARRATIVE: CASE EVENT DATE: 20110131
